FAERS Safety Report 18394658 (Version 1)
Quarter: 2020Q4

REPORT INFORMATION
  Report Type: Report from Study
  Country: IN (occurrence: IN)
  Receive Date: 20201017
  Receipt Date: 20201017
  Transmission Date: 20210114
  Serious: Yes (Death, Hospitalization)
  Sender: FDA-Public Use
  Company Number: NVSC2019IN061396

PATIENT
  Age: 73 Year
  Sex: Male

DRUGS (1)
  1. VYMADA [Suspect]
     Active Substance: SACUBITRIL\VALSARTAN
     Indication: CARDIAC FAILURE CONGESTIVE
     Dosage: 0.5 DF, BID (24MG SACUBITRIL /26MGVALSARTAN)
     Route: 048
     Dates: start: 20191101

REACTIONS (5)
  - Chest pain [Fatal]
  - Product prescribing error [Unknown]
  - Wrong technique in product usage process [Unknown]
  - Myocardial infarction [Fatal]
  - Prescribed underdose [Unknown]

NARRATIVE: CASE EVENT DATE: 20191101
